FAERS Safety Report 6136925-9 (Version None)
Quarter: 2009Q1

REPORT INFORMATION
  Report Type: 
  Country: None (occurrence: None)
  Receive Date: 20090330
  Receipt Date: 20090319
  Transmission Date: 20090719
  Serious: Yes (Other)
  Sender: FDA-Public Use
  Company Number: JP-MERCK-0903USA04475

PATIENT
  Age: 86 Year
  Sex: Male

DRUGS (3)
  1. STROMECTOL [Suspect]
     Indication: ACARODERMATITIS
     Route: 048
     Dates: start: 20090311, end: 20090311
  2. BENZYL BENZOATE [Suspect]
     Indication: ACARODERMATITIS
     Route: 061
     Dates: start: 20090311
  3. EURAX [Concomitant]
     Indication: ACARODERMATITIS
     Route: 061
     Dates: start: 20090312

REACTIONS (1)
  - DRUG ERUPTION [None]
